FAERS Safety Report 6234662-3 (Version None)
Quarter: 2009Q2

REPORT INFORMATION
  Report Type: 
  Country: None (occurrence: None)
  Receive Date: 20090616
  Receipt Date: 20090616
  Transmission Date: 20091009
  Serious: Yes (Other)
  Sender: FDA-Public Use
  Company Number: None

PATIENT
  Sex: Female
  Weight: 124.7392 kg

DRUGS (1)
  1. LEVAQUIN [Suspect]
     Indication: BRONCHITIS
     Dosage: 10 ONE A DAY PO
     Route: 048
     Dates: start: 20081223, end: 20090101

REACTIONS (6)
  - ARTHRALGIA [None]
  - INSOMNIA [None]
  - MEDICATION ERROR [None]
  - MUSCLE TIGHTNESS [None]
  - TENDON DISORDER [None]
  - TENDON PAIN [None]
